FAERS Safety Report 12696600 (Version 1)
Quarter: 2016Q3

REPORT INFORMATION
  Report Type: Spontaneous
  Country: ES (occurrence: ES)
  Receive Date: 20160830
  Receipt Date: 20160830
  Transmission Date: 20161109
  Serious: Yes (Other)
  Sender: FDA-Public Use
  Company Number: ES-SHIRE-ES201611205

PATIENT
  Age: 33 Year
  Sex: Female

DRUGS (2)
  1. 476 (MESALAZINE/MESALAMINE) [Suspect]
     Active Substance: MESALAMINE
     Indication: COLITIS ULCERATIVE
     Dosage: UNK, UNKNOWN
     Route: 048
  2. AZATHIOPRINE. [Suspect]
     Active Substance: AZATHIOPRINE
     Indication: COLITIS ULCERATIVE
     Dosage: 100 MG, 1X/DAY:QD (EVERY 24 HOURS)
     Route: 065

REACTIONS (2)
  - Immunodeficiency [Unknown]
  - Eye infection toxoplasmal [Recovered/Resolved]
